FAERS Safety Report 10391827 (Version 1)
Quarter: 2014Q3

REPORT INFORMATION
  Report Type: Report from Study
  Country: GB (occurrence: GB)
  Receive Date: 20140819
  Receipt Date: 20140819
  Transmission Date: 20150326
  Serious: Yes (Hospitalization)
  Sender: FDA-Public Use
  Company Number: GB-ROCHE-1448650

PATIENT
  Age: 69 Year
  Sex: Male
  Weight: 74.5 kg

DRUGS (5)
  1. RITUXIMAB [Suspect]
     Active Substance: RITUXIMAB
     Indication: B-CELL LYMPHOMA
     Route: 042
  2. CYCLOPHOSPHAMIDE. [Suspect]
     Active Substance: CYCLOPHOSPHAMIDE
     Indication: B-CELL LYMPHOMA
     Route: 048
  3. VINCRISTINE [Suspect]
     Active Substance: VINCRISTINE
     Indication: B-CELL LYMPHOMA
     Route: 042
  4. PREDNISONE. [Suspect]
     Active Substance: PREDNISONE
     Indication: B-CELL LYMPHOMA
     Route: 048
  5. OMEPRAZOLE. [Concomitant]
     Active Substance: OMEPRAZOLE
     Route: 048
     Dates: start: 20140728

REACTIONS (2)
  - Dehydration [Not Recovered/Not Resolved]
  - Neutropenic sepsis [Not Recovered/Not Resolved]

NARRATIVE: CASE EVENT DATE: 20140807
